FAERS Safety Report 24776593 (Version 1)
Quarter: 2024Q4

REPORT INFORMATION
  Report Type: Spontaneous
  Country: CN (occurrence: CN)
  Receive Date: 20241226
  Receipt Date: 20241226
  Transmission Date: 20250114
  Serious: Yes (Other)
  Sender: JOHNSON AND JOHNSON
  Company Number: CN-JNJFOC-20241252133

PATIENT
  Age: 66 Year
  Sex: Female
  Weight: 50 kg

DRUGS (1)
  1. DARZALEX [Suspect]
     Active Substance: DARATUMUMAB
     Indication: Plasma cell myeloma
     Route: 065
     Dates: start: 20241125, end: 20241125

REACTIONS (2)
  - Electrocardiogram QT prolonged [Unknown]
  - Electrocardiogram abnormal [Unknown]
